FAERS Safety Report 16931510 (Version 1)
Quarter: 2019Q4

REPORT INFORMATION
  Report Type: Report from Study
  Country: DE (occurrence: DE)
  Receive Date: 20191017
  Receipt Date: 20191017
  Transmission Date: 20200122
  Serious: Yes (Hospitalization)
  Sender: FDA-Public Use
  Company Number: NVSC2019DE004669

PATIENT
  Sex: Male
  Weight: 98 kg

DRUGS (2)
  1. HYRIMOZ [Suspect]
     Active Substance: ADALIMUMAB-ADAZ
     Indication: PSORIATIC ARTHROPATHY
     Dosage: 40 MG, QW2
     Route: 058
     Dates: start: 20190114
  2. NO TREATMENT RECEIVED [Suspect]
     Active Substance: UNSPECIFIED INGREDIENT
     Indication: PRODUCT USED FOR UNKNOWN INDICATION
     Route: 065

REACTIONS (13)
  - Inflammatory marker increased [Recovering/Resolving]
  - Swelling [Unknown]
  - Contusion [Unknown]
  - Wound haemorrhage [Unknown]
  - Psoriasis [Unknown]
  - Erysipelas [Recovering/Resolving]
  - Erythema [Unknown]
  - Discomfort [Unknown]
  - Pain [Recovering/Resolving]
  - Secretion discharge [Unknown]
  - Fall [Unknown]
  - Skin disorder [Recovering/Resolving]
  - Feeling hot [Unknown]

NARRATIVE: CASE EVENT DATE: 20190909
